FAERS Safety Report 10379533 (Version 4)
Quarter: 2015Q1

REPORT INFORMATION
  Report Type: Spontaneous
  Country: JP (occurrence: None)
  Receive Date: 20140808
  Receipt Date: 20150317
  Transmission Date: 20150720
  Serious: Yes (Other)
  Sender: FDA-Public Use
  Company Number: JP-20140300

PATIENT
  Age: 17 Year
  Sex: Female
  Weight: 56.8 kg

DRUGS (4)
  1. ETHANOL [Concomitant]
     Active Substance: ALCOHOL
  2. HISTOACRYL (ENBUCRILATE) [Concomitant]
  3. NBCA (N-BUTYL CYANOACRYLATE) (N-BUTYL CYANOACRYLATE) [Concomitant]
  4. LIPIODOL ULTRA-FLUIDE [Suspect]
     Active Substance: ETHIODIZED OIL
     Indication: THERAPEUTIC EMBOLISATION
     Dates: start: 20110811, end: 20110811

REACTIONS (4)
  - Haematuria [None]
  - Abdominal pain [None]
  - Nephrolithiasis [None]
  - Product use issue [None]

NARRATIVE: CASE EVENT DATE: 20100810
